FAERS Safety Report 23841608 (Version 1)
Quarter: 2024Q2

REPORT INFORMATION
  Report Type: Spontaneous
  Country: CN (occurrence: CN)
  Receive Date: 20240510
  Receipt Date: 20240510
  Transmission Date: 20240716
  Serious: Yes (Other)
  Sender: FDA-Public Use
  Company Number: CN-ROCHE-3554375

PATIENT
  Age: 34 Year
  Sex: Male

DRUGS (14)
  1. CAPECITABINE [Suspect]
     Active Substance: CAPECITABINE
     Indication: Colon cancer metastatic
     Dosage: D1-D14, BID, CHEMOTHERAPY FOR 4 CYCLES.
     Route: 048
     Dates: start: 202004, end: 202007
  2. CAPECITABINE [Suspect]
     Active Substance: CAPECITABINE
     Indication: Colon cancer metastatic
     Dosage: CHEMOTHERAPY FOR 8 CYCLES.
     Route: 048
     Dates: start: 202009, end: 202203
  3. CAPECITABINE [Suspect]
     Active Substance: CAPECITABINE
     Indication: Colon cancer metastatic
     Dosage: CHEMOTHERAPY FOR 6 CYCLES.
     Route: 048
     Dates: start: 202204, end: 202209
  4. PACLITAXEL [Suspect]
     Active Substance: PACLITAXEL
     Indication: Colon cancer metastatic
     Dosage: 3 CYCLES
     Dates: start: 201909, end: 201911
  5. BEVACIZUMAB [Suspect]
     Active Substance: BEVACIZUMAB
     Indication: Colon cancer metastatic
     Dosage: D2, IVGTT, CHEMOTHERAPY FOR 4 CYCLES.
     Route: 042
     Dates: start: 202004, end: 202007
  6. BEVACIZUMAB [Suspect]
     Active Substance: BEVACIZUMAB
     Indication: Colon cancer metastatic
     Dosage: CHEMOTHERAPY FOR 8 CYCLES.
     Route: 042
     Dates: start: 202009, end: 202203
  7. BEVACIZUMAB [Suspect]
     Active Substance: BEVACIZUMAB
     Indication: Colon cancer metastatic
     Dosage: CHEMOTHERAPY FOR 6 CYCLES.
     Route: 042
     Dates: start: 202204, end: 202209
  8. LOBAPLATIN [Suspect]
     Active Substance: LOBAPLATIN
     Indication: Colon cancer metastatic
     Dosage: D1, IVGTT, CHEMOTHERAPY FOR 4 CYCLES.
     Route: 042
     Dates: start: 202004, end: 202007
  9. LOBAPLATIN [Suspect]
     Active Substance: LOBAPLATIN
     Indication: Colon cancer metastatic
     Dosage: CHEMOTHERAPY FOR 8 CYCLES.
     Route: 042
     Dates: start: 202009, end: 202203
  10. LOBAPLATIN [Suspect]
     Active Substance: LOBAPLATIN
     Indication: Colon cancer metastatic
     Dosage: CHEMOTHERAPY FOR 6 CYCLES.
     Route: 042
     Dates: start: 202204, end: 202209
  11. SINTILIMAB [Suspect]
     Active Substance: SINTILIMAB
     Indication: Colon cancer metastatic
     Dosage: D3, IVGTT; CHEMOTHERAPY FOR 4 CYCLES.
     Route: 042
     Dates: start: 202004, end: 202007
  12. SINTILIMAB [Suspect]
     Active Substance: SINTILIMAB
     Indication: Colon cancer metastatic
     Dosage: CHEMOTHERAPY FOR 8 CYCLES.
     Route: 042
     Dates: start: 202009, end: 202203
  13. SINTILIMAB [Suspect]
     Active Substance: SINTILIMAB
     Indication: Colon cancer metastatic
     Dosage: CHEMOTHERAPY FOR 6 CYCLES.
     Route: 042
     Dates: start: 202204, end: 202209
  14. CYCLOPHOSPHAMIDE [Concomitant]
     Active Substance: CYCLOPHOSPHAMIDE
     Indication: Colon cancer metastatic

REACTIONS (5)
  - Hyperthyroidism [Unknown]
  - Nausea [Unknown]
  - Decreased appetite [Recovered/Resolved]
  - Hepatic function abnormal [Unknown]
  - Off label use [Recovered/Resolved]

NARRATIVE: CASE EVENT DATE: 20190901
